FAERS Safety Report 24107359 (Version 2)
Quarter: 2024Q3

REPORT INFORMATION
  Report Type: Other
  Country: US (occurrence: US)
  Receive Date: 20240718
  Receipt Date: 20240809
  Transmission Date: 20241017
  Serious: Yes (Other)
  Sender: INTERCEPT PHARMACEUTICALS
  Company Number: US-INTERCEPT-PM2024001235

PATIENT
  Age: 65 Year
  Sex: Female

DRUGS (29)
  1. OCALIVA [Suspect]
     Active Substance: OBETICHOLIC ACID
     Indication: Primary biliary cholangitis
     Dosage: 5 MILLIGRAM, QD
     Route: 048
     Dates: start: 20170523
  2. OCALIVA [Suspect]
     Active Substance: OBETICHOLIC ACID
     Indication: Product use in unapproved indication
     Dosage: 10 MILLIGRAM, QW
     Route: 048
     Dates: start: 20180420
  3. OCALIVA [Suspect]
     Active Substance: OBETICHOLIC ACID
     Dosage: 5 MILLIGRAM, QD
     Route: 048
     Dates: end: 20240606
  4. ACTIGALL [Concomitant]
     Active Substance: URSODIOL
     Dosage: 250 MILLIGRAM, BID
     Route: 048
     Dates: start: 20230905, end: 20240624
  5. ALPRAZOLAM [Concomitant]
     Active Substance: ALPRAZOLAM
  6. NORCO [Concomitant]
     Active Substance: ACETAMINOPHEN\HYDROCODONE BITARTRATE
     Indication: Pain
     Dosage: 325 MILLIGRAM, Q6H
     Route: 048
  7. KETOROLAC [Concomitant]
     Active Substance: KETOROLAC TROMETHAMINE
  8. SYNTHROID [Concomitant]
     Active Substance: LEVOTHYROXINE SODIUM
     Dosage: 150 MICROGRAM, QD
     Route: 048
  9. PAXIL [Concomitant]
     Active Substance: PAROXETINE HYDROCHLORIDE
     Dosage: 40 MILLIGRAM, QD
     Route: 048
  10. INDERAL [Concomitant]
     Active Substance: PROPRANOLOL HYDROCHLORIDE
     Route: 042
  11. IMITREX [Concomitant]
     Active Substance: SUMATRIPTAN SUCCINATE
     Dosage: 5 MILLIGRAM, PRN
     Route: 045
  12. ZANAFLEX [Concomitant]
     Active Substance: TIZANIDINE HYDROCHLORIDE
     Dosage: 4 MILLIGRAM, AT BEDTIME
     Route: 048
     Dates: start: 20140224
  13. VALTREX [Concomitant]
     Active Substance: VALACYCLOVIR HYDROCHLORIDE
     Dosage: 500 MILLIGRAM
     Route: 048
     Dates: start: 20180920
  14. FOSAMAX [Concomitant]
     Active Substance: ALENDRONATE SODIUM
     Dosage: 70 MILLIGRAM, QW
     Route: 048
     Dates: start: 20230604
  15. LIPITOR [Concomitant]
     Active Substance: ATORVASTATIN CALCIUM
     Dosage: 10 MILLIGRAM, QD
     Route: 048
     Dates: start: 20230620
  16. CALCIUM [Concomitant]
     Active Substance: CALCIUM
     Route: 048
  17. ZYRTEC [Concomitant]
     Active Substance: CETIRIZINE HYDROCHLORIDE
     Dosage: 10 MILLIGRAM, QD
     Route: 048
  18. CHOLECALCIFEROL [Concomitant]
     Active Substance: CHOLECALCIFEROL
     Route: 048
  19. DICLOFENAC [Concomitant]
     Active Substance: DICLOFENAC
     Dosage: 75 MILLIGRAM, BID
     Route: 048
  20. COLACE [Concomitant]
     Active Substance: DOCUSATE SODIUM
     Indication: Constipation
     Dosage: 50 MILLIGRAM, BID
     Route: 048
  21. MAGNESIUM [Concomitant]
     Active Substance: MAGNESIUM
     Route: 048
  22. BENICAR HCT [Concomitant]
     Active Substance: HYDROCHLOROTHIAZIDE\OLMESARTAN MEDOXOMIL
     Dosage: 12.5 MILLIGRAM, QD
     Route: 048
  23. COREG [Concomitant]
     Active Substance: CARVEDILOL
     Dosage: 6.25 MILLIGRAM, BID
     Route: 048
     Dates: start: 20231119
  24. PEPCID [Concomitant]
     Active Substance: FAMOTIDINE
     Dosage: 20 MILLIGRAM, BID
     Route: 048
  25. LIDOCAINE [Concomitant]
     Active Substance: LIDOCAINE
     Indication: Pain
     Dosage: PLACE 1 PATCH ONTO THE 30 PATCH SKIN DAILY AS NEEDED FOR PAIN. ON FOR 12 HOURS, OFF FOR 12 HOURS IN
     Route: 061
     Dates: start: 20240128
  26. NALOXONE HCL [Concomitant]
     Active Substance: NALOXONE HYDROCHLORIDE
     Dosage: 1 SPRAY BY NASAL ROUTE, PRN
     Route: 045
     Dates: start: 20240128
  27. MIRALAX [Concomitant]
     Active Substance: POLYETHYLENE GLYCOL 3350
     Indication: Constipation
     Dosage: 34 GRAM
     Route: 048
     Dates: start: 20240128
  28. SENOKOT [Concomitant]
     Active Substance: SENNOSIDES
     Dosage: 8.6 MILLIGRAM, TAKE TWO TABLETS BY MOUTH PRN
     Route: 048
     Dates: start: 20240128, end: 2024
  29. TRICOR [Concomitant]
     Active Substance: FENOFIBRATE
     Dosage: 145 MILLIGRAM, QD
     Route: 048
     Dates: start: 20240606

REACTIONS (20)
  - Nephrolithiasis [Unknown]
  - Gastrointestinal haemorrhage [Recovered/Resolved]
  - Chronic gastritis [Unknown]
  - Diverticulum intestinal [Not Recovered/Not Resolved]
  - Haemorrhoids [Not Recovered/Not Resolved]
  - Cholelithiasis [Unknown]
  - Renal cyst [Not Recovered/Not Resolved]
  - Colorectal adenoma [Unknown]
  - Hiatus hernia [Unknown]
  - Spinal fusion surgery [Recovered/Resolved]
  - Polypectomy [Recovered/Resolved]
  - Gastrooesophageal reflux disease [Not Recovered/Not Resolved]
  - Blood urea abnormal [Not Recovered/Not Resolved]
  - Protein total decreased [Not Recovered/Not Resolved]
  - Blood albumin abnormal [Not Recovered/Not Resolved]
  - Mean cell volume abnormal [Not Recovered/Not Resolved]
  - Blood urea nitrogen/creatinine ratio increased [Not Recovered/Not Resolved]
  - Alanine aminotransferase abnormal [Not Recovered/Not Resolved]
  - Aspartate aminotransferase abnormal [Recovered/Resolved]
  - Blood alkaline phosphatase abnormal [Not Recovered/Not Resolved]

NARRATIVE: CASE EVENT DATE: 20180117
